FAERS Safety Report 5421914-X (Version None)
Quarter: 2007Q3

REPORT INFORMATION
  Report Type: 
  Country: None (occurrence: None)
  Receive Date: 20070821
  Receipt Date: 20070821
  Transmission Date: 20080115
  Serious: Yes (Hospitalization)
  Sender: FDA-Public Use
  Company Number: None

PATIENT
  Sex: Female
  Weight: 89.4 kg

DRUGS (1)
  1. CLINORIL [Suspect]
     Dosage: 5550 MG

REACTIONS (16)
  - CONSTIPATION [None]
  - CYST [None]
  - DENTAL OPERATION [None]
  - DESMOID TUMOUR [None]
  - DISEASE PROGRESSION [None]
  - DRUG TOXICITY [None]
  - DRUG WITHDRAWAL SYNDROME [None]
  - HALLUCINATION, VISUAL [None]
  - HEADACHE [None]
  - MAJOR DEPRESSION [None]
  - OVARIAN CYST [None]
  - PELVIC MASS [None]
  - POLYSUBSTANCE DEPENDENCE [None]
  - ROAD TRAFFIC ACCIDENT [None]
  - SELF MUTILATION [None]
  - SUICIDAL IDEATION [None]
